FAERS Safety Report 4485598-X (Version None)
Quarter: 2004Q4

REPORT INFORMATION
  Report Type: 
  Country: None (occurrence: None)
  Receive Date: 20041026
  Receipt Date: 20041015
  Transmission Date: 20050328
  Serious: Yes (Life-Threatening)
  Sender: FDA-Public Use
  Company Number: ES-JNJFOC-20041005226

PATIENT
  Age: 67 Year
  Sex: Male

DRUGS (9)
  1. RISPERDAL [Suspect]
     Indication: SENILE DEMENTIA
     Route: 049
  2. SINOGAN [Interacting]
     Indication: SENILE DEMENTIA
     Route: 049
  3. AMILORIDE HCL AND HYDROCHLOROTHIAZIDE [Concomitant]
     Route: 049
  4. AMILORIDE HCL AND HYDROCHLOROTHIAZIDE [Concomitant]
     Indication: ESSENTIAL HYPERTENSION
     Route: 049
  5. COMBIVENT [Concomitant]
     Route: 055
  6. COMBIVENT [Concomitant]
     Route: 055
  7. SERETIDE [Concomitant]
     Route: 055
  8. SERETIDE [Concomitant]
     Route: 055
  9. ROHYPNOL [Concomitant]
     Indication: SENILE DEMENTIA
     Route: 049

REACTIONS (1)
  - NEUROLEPTIC MALIGNANT SYNDROME [None]
